FAERS Safety Report 14217314 (Version 3)
Quarter: 2018Q1

REPORT INFORMATION
  Report Type: Report from Study
  Country: CA (occurrence: CA)
  Receive Date: 20171123
  Receipt Date: 20180112
  Transmission Date: 20180508
  Serious: Yes (Hospitalization)
  Sender: FDA-Public Use
  Company Number: CA-BIOGEN-2017BI00487495

PATIENT
  Age: 38 Year
  Sex: Female

DRUGS (4)
  1. LAMOTRIGINE. [Concomitant]
     Active Substance: LAMOTRIGINE
     Indication: PRODUCT USED FOR UNKNOWN INDICATION
     Route: 065
  2. TYSABRI [Suspect]
     Active Substance: NATALIZUMAB
     Indication: RELAPSING-REMITTING MULTIPLE SCLEROSIS
     Route: 042
     Dates: start: 20160614
  3. TYSABRI [Suspect]
     Active Substance: NATALIZUMAB
     Dosage: INFUSE OVER 1 HOUR
     Route: 042
     Dates: start: 20171117
  4. TYSABRI [Suspect]
     Active Substance: NATALIZUMAB
     Route: 065
     Dates: start: 20160717

REACTIONS (2)
  - Status epilepticus [Recovered/Resolved]
  - Drug screen positive [Unknown]

NARRATIVE: CASE EVENT DATE: 20171116
